FAERS Safety Report 5181119-7 (Version None)
Quarter: 2006Q4

REPORT INFORMATION
  Report Type: 
  Country: None (occurrence: None)
  Receive Date: 20061212
  Receipt Date: 20061130
  Transmission Date: 20070319
  Serious: Yes (Other)
  Sender: FDA-Public Use
  Company Number: 2006149100

PATIENT
  Age: 62 Year
  Sex: Female
  Weight: 106.5953 kg

DRUGS (6)
  1. LIPITOR [Suspect]
     Indication: BLOOD CHOLESTEROL INCREASED
     Dosage: 20 MG (20 MG, 1 IN 1 D)
     Dates: start: 19970101
  2. NEURONTIN [Suspect]
     Indication: DIABETIC NEUROPATHY
     Dosage: 400 MG (1 IN 1 D)
     Dates: start: 20020101
  3. HUMULIN (INSULIN HUMAN, INSULIN ISOPHANE, HUMAN BIOSYNTHETIC) [Concomitant]
  4. DIAZIDE (GLICLAZIDE) [Concomitant]
  5. VERAPAMIL [Concomitant]
  6. TRAMADOL HCL [Concomitant]

REACTIONS (3)
  - BLOOD TRIGLYCERIDES INCREASED [None]
  - DIABETIC NEUROPATHY [None]
  - THYROID DISORDER [None]
